FAERS Safety Report 9441847 (Version 1)
Quarter: 2013Q3

REPORT INFORMATION
  Report Type: Spontaneous
  Country: GB (occurrence: None)
  Receive Date: 20130801
  Receipt Date: 20130801
  Transmission Date: 20140515
  Serious: Yes (Life-Threatening)
  Sender: FDA-Public Use
  Company Number: SYM-2013-06950

PATIENT
  Age: 37 Year
  Sex: Male

DRUGS (3)
  1. METRONIDAZOLE [Suspect]
     Indication: PRODUCT USED FOR UNKNOWN INDICATION
     Dates: start: 201306
  2. LEVOFLOXACIN [Suspect]
     Indication: PRODUCT USED FOR UNKNOWN INDICATION
     Dates: start: 201306
  3. ALLOPURINOL [Suspect]
     Indication: GOUT
     Route: 048
     Dates: start: 201305, end: 20130625

REACTIONS (2)
  - Anaphylactic reaction [None]
  - Drug reaction with eosinophilia and systemic symptoms [None]
